FAERS Safety Report 7168665-1 (Version None)
Quarter: 2010Q4

REPORT INFORMATION
  Report Type: 
  Country: None (occurrence: None)
  Receive Date: 20101216
  Receipt Date: 20100122
  Transmission Date: 20110411
  Serious: No
  Sender: FDA-Public Use
  Company Number: US-AMGEN-KDL387655

PATIENT

DRUGS (2)
  1. ENBREL [Suspect]
     Indication: PSORIASIS
     Dosage: 50 MG, QWK
     Route: 058
     Dates: start: 20081002
  2. ADALIMUMAB [Suspect]
     Dosage: UNK UNK, UNK
     Dates: end: 20091231

REACTIONS (11)
  - EAR CONGESTION [None]
  - IMPAIRED HEALING [None]
  - INJECTION SITE ERYTHEMA [None]
  - INJECTION SITE PRURITUS [None]
  - INJECTION SITE SWELLING [None]
  - INJECTION SITE WARMTH [None]
  - MALAISE [None]
  - PSORIASIS [None]
  - PYREXIA [None]
  - RHINORRHOEA [None]
  - THERAPEUTIC RESPONSE DECREASED [None]
